FAERS Safety Report 9451591 (Version 1)
Quarter: 2013Q3

REPORT INFORMATION
  Report Type: Spontaneous
  Country: BR (occurrence: BR)
  Receive Date: 20130811
  Receipt Date: 20130811
  Transmission Date: 20140515
  Serious: Yes (Death)
  Sender: FDA-Public Use
  Company Number: BR-CUBIST PHARMACEUTICAL, INC.-2013CBST000293

PATIENT
  Sex: 0

DRUGS (1)
  1. CUBICIN [Suspect]
     Indication: STAPHYLOCOCCAL BACTERAEMIA
     Dosage: UNK UNK, UNK
     Route: 065

REACTIONS (2)
  - Bacteraemia [Fatal]
  - Fungaemia [Fatal]
